FAERS Safety Report 4409822-4 (Version None)
Quarter: 2004Q3

REPORT INFORMATION
  Report Type: 
  Country: None (occurrence: None)
  Receive Date: 20040727
  Receipt Date: 20040727
  Transmission Date: 20050211
  Serious: Yes (Life-Threatening)
  Sender: FDA-Public Use
  Company Number: None

PATIENT
  Sex: Female
  Weight: 63.5036 kg

DRUGS (4)
  1. PAXIL [Suspect]
     Indication: DEPRESSION
     Dosage: 12.5 MG  DAILY  ORAL
     Route: 048
     Dates: start: 20001211, end: 20021120
  2. PAXIL [Suspect]
     Indication: POSTPARTUM DEPRESSION
     Dosage: 12.5 MG  DAILY  ORAL
     Route: 048
     Dates: start: 20001211, end: 20021120
  3. PAXIL [Suspect]
     Indication: DEPRESSION
     Dosage: 12.5 MG  DAILY  ORAL
     Route: 048
     Dates: start: 20030507, end: 20040726
  4. PAXIL [Suspect]
     Indication: POSTPARTUM DEPRESSION
     Dosage: 12.5 MG  DAILY  ORAL
     Route: 048
     Dates: start: 20030507, end: 20040726

REACTIONS (2)
  - IMPULSIVE BEHAVIOUR [None]
  - PYROMANIA [None]
